FAERS Safety Report 19614804 (Version 1)
Quarter: 2021Q3

REPORT INFORMATION
  Report Type: Spontaneous
  Country: JP (occurrence: JP)
  Receive Date: 20210727
  Receipt Date: 20210727
  Transmission Date: 20211014
  Serious: Yes (Hospitalization)
  Sender: FDA-Public Use
  Company Number: JP-PFIZER INC-2021882856

PATIENT
  Age: 63 Year
  Sex: Male

DRUGS (4)
  1. INLYTA [Suspect]
     Active Substance: AXITINIB
     Indication: RENAL CELL CARCINOMA
     Route: 048
  2. ELIQUIS [Concomitant]
     Active Substance: APIXABAN
  3. THYRADIN [Concomitant]
     Active Substance: LEVOTHYROXINE
  4. KEYTRUDA [Concomitant]
     Active Substance: PEMBROLIZUMAB
     Indication: RENAL CELL CARCINOMA

REACTIONS (6)
  - Pneumoperitoneum [Recovering/Resolving]
  - Abdominal pain [Unknown]
  - Chest pain [Unknown]
  - Dyspnoea [Unknown]
  - Cardiovascular disorder [Unknown]
  - Gastrointestinal perforation [Recovering/Resolving]

NARRATIVE: CASE EVENT DATE: 20210706
